FAERS Safety Report 18550093 (Version 1)
Quarter: 2020Q4

REPORT INFORMATION
  Report Type: Spontaneous
  Country: GB (occurrence: GB)
  Receive Date: 20201126
  Receipt Date: 20201126
  Transmission Date: 20210114
  Serious: Yes (Other)
  Sender: FDA-Public Use
  Company Number: GB-PFIZER INC-2020464205

PATIENT
  Age: 74 Year
  Sex: Female
  Weight: 73.75 kg

DRUGS (1)
  1. METHOTREXATE SODIUM. [Suspect]
     Active Substance: METHOTREXATE SODIUM
     Indication: TENOSYNOVITIS
     Dosage: 2.5 MG, EVERY 6 WEEKS
     Route: 048
     Dates: start: 20200721, end: 20200727

REACTIONS (3)
  - Swelling face [Recovered/Resolved]
  - Off label use [Unknown]
  - Erythema [Recovered/Resolved]

NARRATIVE: CASE EVENT DATE: 20200721
